FAERS Safety Report 13854479 (Version 1)
Quarter: 2017Q3

REPORT INFORMATION
  Report Type: Spontaneous
  Country: US (occurrence: US)
  Receive Date: 20170810
  Receipt Date: 20170810
  Transmission Date: 20171127
  Serious: No
  Sender: FDA-Public Use
  Company Number: None

PATIENT
  Age: 59 Year
  Sex: Male
  Weight: 80.29 kg

DRUGS (6)
  1. BENADRYL [Concomitant]
     Active Substance: DIPHENHYDRAMINE HYDROCHLORIDE
  2. COLESTIPOL [Concomitant]
     Active Substance: COLESTIPOL
  3. PANTOPRAZOLE [Concomitant]
     Active Substance: PANTOPRAZOLE
  4. URSODIOL. [Concomitant]
     Active Substance: URSODIOL
  5. HYDROXYZINE [Concomitant]
     Active Substance: HYDROXYZINE HYDROCHLORIDE
  6. BUPIVACAINE. [Suspect]
     Active Substance: BUPIVACAINE
     Indication: HERNIA
     Dates: start: 20170524, end: 20170527

REACTIONS (6)
  - Weight decreased [None]
  - Pruritus [None]
  - Diarrhoea [None]
  - Haematochezia [None]
  - Chromaturia [None]
  - Skin discolouration [None]

NARRATIVE: CASE EVENT DATE: 20170615
